FAERS Safety Report 17048823 (Version 1)
Quarter: 2019Q4

REPORT INFORMATION
  Report Type: Spontaneous
  Country: US (occurrence: US)
  Receive Date: 20191118
  Receipt Date: 20191118
  Transmission Date: 20200122
  Serious: No
  Sender: FDA-Public Use
  Company Number: None

PATIENT
  Age: 55 Year
  Sex: Male
  Weight: 95 kg

DRUGS (1)
  1. HEPARIN [Suspect]
     Active Substance: HEPARIN SODIUM
     Dates: start: 20191021, end: 20191021

REACTIONS (3)
  - Therapeutic product effect incomplete [None]
  - Therapeutic response decreased [None]
  - Therapy change [None]

NARRATIVE: CASE EVENT DATE: 20191021
